FAERS Safety Report 9178865 (Version 1)
Quarter: 2013Q1

REPORT INFORMATION
  Report Type: Report from Study
  Country: US (occurrence: US)
  Receive Date: 20130321
  Receipt Date: 20130321
  Transmission Date: 20140127
  Serious: Yes (Other)
  Sender: FDA-Public Use
  Company Number: US-ABBOTT-13P-163-1064174-00

PATIENT
  Age: 62 None
  Sex: Female
  Weight: 90.8 kg

DRUGS (12)
  1. HUMIRA [Suspect]
     Indication: RHEUMATOID ARTHRITIS
     Dates: start: 2011
  2. METHOTREXATE [Concomitant]
     Indication: RHEUMATOID ARTHRITIS
  3. CYMBALTA [Concomitant]
     Indication: FIBROMYALGIA
  4. ATHROTEC [Concomitant]
     Indication: RHEUMATOID ARTHRITIS
  5. ATHROTEC [Concomitant]
     Indication: OSTEOARTHRITIS
  6. METFORMIN [Concomitant]
     Indication: INSULIN RESISTANCE
  7. LOSARTAN [Concomitant]
     Indication: HYPERTENSION
  8. ASPIRIN [Concomitant]
     Indication: PRODUCT USED FOR UNKNOWN INDICATION
  9. LEVOTHYROXINE [Concomitant]
     Indication: AUTOIMMUNE THYROIDITIS
  10. PROVACOL [Concomitant]
     Indication: BLOOD CHOLESTEROL INCREASED
  11. TRAZADONE [Concomitant]
     Indication: INSOMNIA
  12. TEMAZEPAM [Concomitant]
     Indication: INSOMNIA

REACTIONS (5)
  - Exostosis [Recovered/Resolved]
  - Musculoskeletal pain [Recovered/Resolved]
  - Bursitis [Unknown]
  - Procedural pain [Not Recovered/Not Resolved]
  - Rotator cuff syndrome [Recovered/Resolved]
